FAERS Safety Report 5896450-7 (Version None)
Quarter: 2008Q3

REPORT INFORMATION
  Report Type: 
  Country: None (occurrence: None)
  Receive Date: 20080924
  Receipt Date: 20070710
  Transmission Date: 20090109
  Serious: Yes (Other)
  Sender: FDA-Public Use
  Company Number: US-BAYER-200711823BWH

PATIENT
  Sex: Female

DRUGS (5)
  1. AVELOX [Suspect]
     Indication: CYSTITIS
     Route: 048
     Dates: start: 20070612
  2. AVELOX [Suspect]
     Route: 048
     Dates: start: 20070402
  3. AVELOX [Suspect]
     Route: 048
     Dates: start: 20021121
  4. QUINOLONES (NOS) [Concomitant]
  5. ANTIBIOTICS (NOS) [Concomitant]

REACTIONS (9)
  - ANAPHYLACTIC REACTION [None]
  - ERYTHEMA [None]
  - FEELING HOT [None]
  - HEAT RASH [None]
  - LIP SWELLING [None]
  - OBSTRUCTIVE AIRWAYS DISORDER [None]
  - OEDEMA PERIPHERAL [None]
  - PRURITUS [None]
  - RASH [None]
